FAERS Safety Report 5585322-3 (Version None)
Quarter: 2008Q1

REPORT INFORMATION
  Report Type: 
  Country: None (occurrence: None)
  Receive Date: 20080109
  Receipt Date: 20080104
  Transmission Date: 20080703
  Serious: Yes (Hospitalization, Disabling)
  Sender: FDA-Public Use
  Company Number: GB-TEVA-165967ISR

PATIENT
  Age: 65 Year
  Sex: Male

DRUGS (1)
  1. AMLODIPINE [Suspect]
     Indication: HYPERTENSION
     Route: 048
     Dates: start: 20050101, end: 20071122

REACTIONS (1)
  - DEMYELINATING POLYNEUROPATHY [None]
